FAERS Safety Report 8224195-7 (Version None)
Quarter: 2012Q1

REPORT INFORMATION
  Report Type: 
  Country: None (occurrence: None)
  Receive Date: 20120321
  Receipt Date: 20120315
  Transmission Date: 20120608
  Serious: Yes (Death, Other)
  Sender: FDA-Public Use
  Company Number: MX-BRISTOL-MYERS SQUIBB COMPANY-16461048

PATIENT
  Age: 80 Year
  Sex: Male
  Weight: 120 kg

DRUGS (5)
  1. ALDACTONE [Concomitant]
     Indication: HYPERTENSION
     Dosage: 1DF= 1 TAB FOR 24 HRS
     Route: 048
     Dates: start: 20030101, end: 20120206
  2. LANTUS [Suspect]
     Indication: TYPE 2 DIABETES MELLITUS
     Route: 058
     Dates: start: 20070101, end: 20120206
  3. AVALIDE [Suspect]
     Indication: HYPERTENSION
     Dosage: 1DF= 1 TAB FOR 24 HRS
     Route: 048
     Dates: start: 20030101, end: 20120206
  4. ADALAT [Concomitant]
     Indication: HYPERTENSION
     Dosage: 1DF= 1 TAB FOR 24 HRS
     Route: 048
     Dates: start: 20030101, end: 20120206
  5. PLAVIX [Suspect]
     Indication: THROMBOSIS PROPHYLAXIS
     Dosage: 1DF= 1 TAB FOR 24 HRS
     Route: 048
     Dates: start: 20060101, end: 20120206

REACTIONS (1)
  - MYOCARDIAL INFARCTION [None]
